FAERS Safety Report 19674969 (Version 1)
Quarter: 2021Q3

REPORT INFORMATION
  Report Type: Other
  Country: DE (occurrence: DE)
  Receive Date: 20210809
  Receipt Date: 20210809
  Transmission Date: 20211014
  Serious: Yes (Hospitalization, Other)
  Sender: FDA-Public Use
  Company Number: DE-MACLEODS PHARMA UK LTD-MAC2021032160

PATIENT

DRUGS (2)
  1. ESCITALOPRAM [Suspect]
     Active Substance: ESCITALOPRAM OXALATE
     Indication: PRODUCT USED FOR UNKNOWN INDICATION
     Dosage: 20 MILLIGRAM, QD (1?0?0?0)
     Route: 048
  2. IMIPRAMINE [Suspect]
     Active Substance: IMIPRAMINE
     Indication: PRODUCT USED FOR UNKNOWN INDICATION
     Dosage: 25 MILLIGRAM, QD (0?0?1?0)
     Route: 048

REACTIONS (3)
  - Product prescribing error [Unknown]
  - Atrial fibrillation [Unknown]
  - Tachycardia [Unknown]
